FAERS Safety Report 6254448-3 (Version None)
Quarter: 2009Q3

REPORT INFORMATION
  Report Type: 
  Country: None (occurrence: None)
  Receive Date: 20090701
  Receipt Date: 20090701
  Transmission Date: 20100115
  Serious: Yes (Other)
  Sender: FDA-Public Use
  Company Number: None

PATIENT
  Age: 59 Year
  Sex: Female
  Weight: 113.3993 kg

DRUGS (1)
  1. MAGNESIUM CITRATE SALINE LAXATIVE ORAL SOLUTION RITE AID [Suspect]
     Indication: COLONOSCOPY
     Dosage: 15 OZ 1 PO
     Route: 048
     Dates: start: 20090629, end: 20090629

REACTIONS (6)
  - DIZZINESS [None]
  - LIP SWELLING [None]
  - PHARYNGEAL OEDEMA [None]
  - SWELLING FACE [None]
  - SWOLLEN TONGUE [None]
  - VOMITING [None]
